FAERS Safety Report 4915756-9 (Version None)
Quarter: 2006Q1

REPORT INFORMATION
  Report Type: 
  Country: None (occurrence: None)
  Receive Date: 20060217
  Receipt Date: 20060208
  Transmission Date: 20060701
  Serious: Yes (Other)
  Sender: FDA-Public Use
  Company Number: JP-JNJFOC-20060202156

PATIENT
  Age: 48 Year
  Sex: Female

DRUGS (3)
  1. TAVANIC [Suspect]
     Indication: EYE INFECTION
     Route: 042
     Dates: start: 20051217, end: 20051222
  2. TAVANIC [Suspect]
     Route: 048
  3. TOBRAMYCIN [Concomitant]
     Indication: EYE INFECTION
     Route: 047
     Dates: start: 20051217

REACTIONS (2)
  - CONVULSION [None]
  - LOSS OF CONSCIOUSNESS [None]
